FAERS Safety Report 4506145-X (Version None)
Quarter: 2004Q4

REPORT INFORMATION
  Report Type: 
  Country: None (occurrence: None)
  Receive Date: 20041025
  Receipt Date: 20040507
  Transmission Date: 20050328
  Serious: Yes (Other)
  Sender: FDA-Public Use
  Company Number: US-JNJFOC-20040404178

PATIENT
  Age: 74 Year
  Sex: Female
  Weight: 68.4932 kg

DRUGS (18)
  1. REMICADE [Suspect]
     Indication: RHEUMATOID ARTHRITIS
     Dosage: INTRAVENOUS
     Route: 042
     Dates: start: 20030402
  2. TENORMIN [Concomitant]
  3. LIPITOR [Concomitant]
  4. PLAVIX [Concomitant]
  5. AMARYL (GLIMPEPIRIDE) [Concomitant]
  6. PREVACID [Concomitant]
  7. PREDNISONE [Concomitant]
  8. LEVAQUIN [Concomitant]
  9. FOLIC ACID [Concomitant]
  10. CYTOTEC [Concomitant]
  11. METHOTREXATE SODIUM [Concomitant]
  12. MVI (MULTIVITAMINS) [Concomitant]
  13. ASA (ACETYLALICYLIC ACID) [Concomitant]
  14. HUMALOG [Concomitant]
  15. DARVOCET [Concomitant]
  16. OXYCONTIN (OXYOCODONE HYDROCHLORIDE) [Concomitant]
  17. LASIX [Concomitant]
  18. LORTIS (ALL OTHER THERAPEUTIC PRODUCTS) [Concomitant]

REACTIONS (2)
  - BLOOD PRESSURE DECREASED [None]
  - INFUSION RELATED REACTION [None]
